FAERS Safety Report 6664147-1 (Version None)
Quarter: 2010Q2

REPORT INFORMATION
  Report Type: 
  Country: None (occurrence: None)
  Receive Date: 20100401
  Receipt Date: 20100325
  Transmission Date: 20101027
  Serious: Yes (Other)
  Sender: FDA-Public Use
  Company Number: B0644184A

PATIENT
  Age: 62 Year
  Sex: Male

DRUGS (6)
  1. AUGMENTIN '125' [Suspect]
     Indication: TRACHEOBRONCHITIS
     Route: 042
     Dates: start: 20100221, end: 20100226
  2. FENITOINA [Suspect]
     Route: 042
     Dates: start: 20100220, end: 20100225
  3. PROPOFOL [Suspect]
     Indication: SEDATION
     Route: 065
     Dates: start: 20100220, end: 20100226
  4. NIMODIPINE [Concomitant]
     Route: 042
     Dates: start: 20100219
  5. PANTOPRAZOL [Concomitant]
     Indication: PROPHYLAXIS
     Dates: start: 20090219
  6. ENALAPRIL MALEATE [Concomitant]
     Indication: HYPERTENSION
     Route: 048
     Dates: start: 20090101, end: 20100219

REACTIONS (1)
  - HEPATOTOXICITY [None]
